FAERS Safety Report 23805137 (Version 2)
Quarter: 2024Q4

REPORT INFORMATION
  Report Type: Report from Study
  Country: FR (occurrence: FR)
  Receive Date: 20240502
  Receipt Date: 20241022
  Transmission Date: 20250114
  Serious: Yes (Hospitalization)
  Sender: AMGEN
  Company Number: FR-AMGEN-FRANI2024084307

PATIENT
  Age: 78 Year
  Sex: Female
  Weight: 58 kg

DRUGS (1)
  1. BEVACIZUMAB [Suspect]
     Active Substance: BEVACIZUMAB
     Indication: Neoplasm
     Dosage: UNK, Q3WK/ LAST DOSE ADMINISTERED PRIOR TO AE/SAE IS 875 MG
     Route: 042
     Dates: start: 20230126

REACTIONS (1)
  - Renal impairment [Recovered/Resolved with Sequelae]

NARRATIVE: CASE EVENT DATE: 20231001
